FAERS Safety Report 7087422-8 (Version None)
Quarter: 2010Q4

REPORT INFORMATION
  Report Type: 
  Country: None (occurrence: None)
  Receive Date: 20101108
  Receipt Date: 20101029
  Transmission Date: 20110411
  Serious: No
  Sender: FDA-Public Use
  Company Number: US-BIOGENIDEC-2010BI027561

PATIENT
  Sex: Female

DRUGS (1)
  1. TYSABRI [Suspect]
     Indication: MULTIPLE SCLEROSIS
     Route: 042
     Dates: start: 20100806, end: 20100901

REACTIONS (11)
  - ANXIETY [None]
  - DYSGEUSIA [None]
  - DYSPNOEA [None]
  - FLUID RETENTION [None]
  - HYPOAESTHESIA [None]
  - OEDEMA MOUTH [None]
  - OEDEMA PERIPHERAL [None]
  - PARAESTHESIA [None]
  - PHARYNGEAL OEDEMA [None]
  - SWELLING [None]
  - WEIGHT INCREASED [None]
